FAERS Safety Report 8442982 (Version 4)
Quarter: 2013Q2

REPORT INFORMATION
  Report Type: Spontaneous
  Country: CA (occurrence: CA)
  Receive Date: 20120306
  Receipt Date: 20130617
  Transmission Date: 20140414
  Serious: Yes (Other)
  Sender: FDA-Public Use
  Company Number: CA-ROCHE-1044893

PATIENT
  Age: 41 Year
  Sex: Female
  Weight: 65 kg

DRUGS (9)
  1. XOLAIR [Suspect]
     Indication: ASTHMA
     Route: 058
     Dates: start: 20080315
  2. XOLAIR [Suspect]
     Route: 058
     Dates: start: 20090707
  3. XOLAIR [Suspect]
     Route: 058
     Dates: start: 20090929
  4. XOLAIR [Suspect]
     Route: 058
     Dates: start: 20091027
  5. XOLAIR [Suspect]
     Route: 058
     Dates: start: 20100113
  6. XOLAIR [Suspect]
     Route: 058
     Dates: start: 20090413
  7. REACTINE EXTRA STRENGTH [Concomitant]
  8. ALLEGRA [Concomitant]
  9. VENTOLIN [Concomitant]

REACTIONS (10)
  - Pharyngeal oedema [Unknown]
  - Seasonal allergy [Unknown]
  - Pulmonary congestion [Unknown]
  - Aphonia [Unknown]
  - Pneumonia [Recovering/Resolving]
  - Dyspnoea [Recovering/Resolving]
  - Oropharyngeal pain [Recovering/Resolving]
  - Sinusitis [Recovering/Resolving]
  - Bronchitis [Recovering/Resolving]
  - Headache [Unknown]
